FAERS Safety Report 13886381 (Version 1)
Quarter: 2017Q3

REPORT INFORMATION
  Report Type: Spontaneous
  Country: US (occurrence: US)
  Receive Date: 20170821
  Receipt Date: 20170821
  Transmission Date: 20171127
  Serious: No
  Sender: FDA-Public Use
  Company Number: US-ASTRAZENECA-2017SE84251

PATIENT
  Age: 93 Year
  Sex: Female
  Weight: 63.5 kg

DRUGS (3)
  1. SIMVASTATIN. [Concomitant]
     Active Substance: SIMVASTATIN
  2. CARVEDILOL. [Concomitant]
     Active Substance: CARVEDILOL
     Indication: CARDIAC DISORDER
  3. RHINOCORT ALLERGY [Suspect]
     Active Substance: BUDESONIDE
     Indication: MULTIPLE ALLERGIES
     Dosage: TWO SPRAYS IN EACH SIDE OF THE NOSE, TWICE A DAY
     Route: 045
     Dates: start: 20170221, end: 2017

REACTIONS (3)
  - Eustachian tube disorder [Recovered/Resolved]
  - Ear pain [Recovered/Resolved]
  - Inappropriate schedule of drug administration [Unknown]

NARRATIVE: CASE EVENT DATE: 2017
